FAERS Safety Report 6913308-2 (Version None)
Quarter: 2010Q3

REPORT INFORMATION
  Report Type: 
  Country: None (occurrence: None)
  Receive Date: 20100809
  Receipt Date: 20100802
  Transmission Date: 20110219
  Serious: Yes (Death, Other)
  Sender: FDA-Public Use
  Company Number: TR-RANBAXY-2010RR-35581

PATIENT
  Age: 36 Year
  Sex: Female

DRUGS (5)
  1. STAVUDINE [Suspect]
     Indication: HIV INFECTION
  2. ZIDOVUDINE [Suspect]
     Indication: HIV INFECTION
  3. DIDANOSINE [Suspect]
     Indication: HIV INFECTION
  4. NELFINAVIR MESYLATE [Suspect]
     Indication: HIV INFECTION
  5. GANCICLOVIR [Concomitant]

REACTIONS (1)
  - UVEITIS [None]
